FAERS Safety Report 7595755-1 (Version None)
Quarter: 2011Q3

REPORT INFORMATION
  Report Type: 
  Country: None (occurrence: None)
  Receive Date: 20110707
  Receipt Date: 20110705
  Transmission Date: 20111222
  Serious: Yes (Life-Threatening, Hospitalization, Congenital Anomaly, Other)
  Sender: FDA-Public Use
  Company Number: US-PFIZER INC-2007095334

PATIENT
  Sex: Male
  Weight: 3.8 kg

DRUGS (8)
  1. INSULIN [Concomitant]
     Indication: TYPE 2 DIABETES MELLITUS
     Dosage: UNK
  2. ZOLOFT [Suspect]
     Dosage: 100 MG, 1X/DAY
     Route: 064
  3. ADVAIR DISKUS 100/50 [Concomitant]
     Dosage: UNK
  4. ACTOS [Concomitant]
     Indication: TYPE 2 DIABETES MELLITUS
     Dosage: UNK
  5. SYNTHROID [Concomitant]
     Indication: HYPOTHYROIDISM
     Dosage: UNK
  6. LEVOTHYROXINE [Concomitant]
     Dosage: UNK
  7. SINGULAIR [Concomitant]
     Dosage: UNK
  8. CLARITIN-D 24 HOUR [Concomitant]
     Dosage: UNK

REACTIONS (7)
  - FALLOT'S TETRALOGY [None]
  - RESPIRATORY DISTRESS [None]
  - DEVELOPMENTAL DELAY [None]
  - MATERNAL EXPOSURE DURING PREGNANCY [None]
  - PULMONARY ARTERY ATRESIA [None]
  - ASTHMA [None]
  - GRAND MAL CONVULSION [None]
